FAERS Safety Report 23039267 (Version 1)
Quarter: 2023Q4

REPORT INFORMATION
  Report Type: Other
  Country: CA (occurrence: CA)
  Receive Date: 20231006
  Receipt Date: 20231006
  Transmission Date: 20240110
  Serious: Yes (Other)
  Sender: FDA-Public Use
  Company Number: CA-GE HEALTHCARE-2023CSU008901

PATIENT
  Age: 38 Year
  Sex: Male

DRUGS (2)
  1. OMNIPAQUE [Suspect]
     Active Substance: IOHEXOL
     Indication: Diagnostic procedure
     Dosage: UNK UNK, SINGLE
     Route: 042
  2. OMNIPAQUE [Suspect]
     Active Substance: IOHEXOL
     Indication: Product used for unknown indication

REACTIONS (6)
  - Feeling abnormal [Recovering/Resolving]
  - Sneezing [Recovering/Resolving]
  - Pallor [Recovering/Resolving]
  - Nasal congestion [Recovering/Resolving]
  - Oxygen saturation decreased [Recovering/Resolving]
  - Paraesthesia oral [Recovering/Resolving]
